FAERS Safety Report 15580406 (Version 4)
Quarter: 2019Q1

REPORT INFORMATION
  Report Type: Spontaneous
  Country: US (occurrence: US)
  Receive Date: 20181102
  Receipt Date: 20190103
  Transmission Date: 20190417
  Serious: Yes (Other)
  Sender: FDA-Public Use
  Company Number: US-BAYER-2018-203199

PATIENT
  Age: 38 Year
  Sex: Female

DRUGS (2)
  1. MIRENA [Suspect]
     Active Substance: LEVONORGESTREL
  2. MIRENA [Suspect]
     Active Substance: LEVONORGESTREL
     Dosage: 20 MCG/24HR, CONT
     Route: 015
     Dates: start: 20131212

REACTIONS (5)
  - Vaginal haemorrhage [Not Recovered/Not Resolved]
  - Pregnancy with contraceptive device [None]
  - Drug ineffective [None]
  - Genital haemorrhage [Not Recovered/Not Resolved]
  - Abortion spontaneous [None]

NARRATIVE: CASE EVENT DATE: 201809
